FAERS Safety Report 4868760-3 (Version None)
Quarter: 2005Q4

REPORT INFORMATION
  Report Type: 
  Country: None (occurrence: None)
  Receive Date: 20051223
  Receipt Date: 20051213
  Transmission Date: 20060501
  Serious: Yes (Hospitalization)
  Sender: FDA-Public Use
  Company Number: ST-2005-008768

PATIENT
  Age: 71 Year
  Sex: Male

DRUGS (2)
  1. OLMETEC [Suspect]
     Indication: HYPERTENSION
     Dosage: 10 MG QD PO
     Route: 048
     Dates: start: 20050829, end: 20051123
  2. CASODEX [Concomitant]

REACTIONS (1)
  - LOSS OF CONSCIOUSNESS [None]
